FAERS Safety Report 4728169-X (Version None)
Quarter: 2005Q3

REPORT INFORMATION
  Report Type: 
  Country: None (occurrence: None)
  Receive Date: 20050728
  Receipt Date: 20050728
  Transmission Date: 20060218
  Serious: Yes (Disabling)
  Sender: FDA-Public Use
  Company Number: None

PATIENT
  Age: 57 Year
  Sex: Male
  Weight: 108.8633 kg

DRUGS (1)
  1. VIOXX [Suspect]
     Dosage: 1-TAB DAILY 2-TAB DAIL ORAL
     Route: 048
     Dates: start: 19990716, end: 20030723

REACTIONS (10)
  - ARTHRALGIA [None]
  - CARTILAGE INJURY [None]
  - CHEST PAIN [None]
  - CYST [None]
  - FATIGUE [None]
  - GANGLION [None]
  - GENERALISED OEDEMA [None]
  - HEART RATE INCREASED [None]
  - MUSCULAR WEAKNESS [None]
  - SWELLING [None]
